FAERS Safety Report 5158990-8 (Version None)
Quarter: 2006Q4

REPORT INFORMATION
  Report Type: 
  Country: None (occurrence: None)
  Receive Date: 20061117
  Receipt Date: 20061108
  Transmission Date: 20070319
  Serious: Yes (Other)
  Sender: FDA-Public Use
  Company Number: 225696

PATIENT
  Age: 60 Year
  Sex: Female

DRUGS (10)
  1. XOLAIR [Suspect]
     Indication: ASTHMA
     Dosage: SEE IMAGE
     Dates: start: 20050101
  2. XOLAIR [Suspect]
     Indication: ASTHMA
     Dosage: SEE IMAGE
     Dates: start: 20060821
  3. BYETTA [Concomitant]
  4. ZOLOFT [Concomitant]
  5. SYNTHROID [Concomitant]
  6. AMARYL [Concomitant]
  7. ALLOPURINOL [Concomitant]
  8. ZETIA [Concomitant]
  9. AVAPRO [Concomitant]
  10. SPIRIVA [Concomitant]

REACTIONS (4)
  - HEPATIC CYST [None]
  - LUNG DISORDER [None]
  - RECURRENT CANCER [None]
  - SPINAL FRACTURE [None]
